FAERS Safety Report 18984356 (Version 1)
Quarter: 2021Q1

REPORT INFORMATION
  Report Type: Spontaneous
  Country: PR (occurrence: PR)
  Receive Date: 20210308
  Receipt Date: 20210308
  Transmission Date: 20210420
  Serious: No
  Sender: FDA-Public Use
  Company Number: PR-PFIZER INC-2021144155

PATIENT
  Age: 39 Year
  Sex: Female

DRUGS (1)
  1. HYDROCORTISONE ACETATE. [Suspect]
     Active Substance: HYDROCORTISONE ACETATE
     Indication: ADDISON^S DISEASE
     Dosage: UNK

REACTIONS (3)
  - Hypertension [Unknown]
  - Condition aggravated [Unknown]
  - Drug ineffective [Unknown]
